FAERS Safety Report 25057210 (Version 2)
Quarter: 2025Q2

REPORT INFORMATION
  Report Type: Spontaneous
  Country: JP (occurrence: JP)
  Receive Date: 20250310
  Receipt Date: 20250404
  Transmission Date: 20250717
  Serious: Yes (Other)
  Sender: GILEAD
  Company Number: JP-GILEAD-2025-0706215

PATIENT
  Age: 31 Year
  Sex: Male

DRUGS (1)
  1. VEMLIDY [Suspect]
     Active Substance: TENOFOVIR ALAFENAMIDE FUMARATE
     Indication: Hepatitis B
     Route: 065

REACTIONS (2)
  - Autoimmune hepatitis [Recovering/Resolving]
  - Intentional product use issue [Unknown]
